FAERS Safety Report 4279273-4 (Version None)
Quarter: 2004Q1

REPORT INFORMATION
  Report Type: 
  Country: None (occurrence: None)
  Receive Date: 20040122
  Receipt Date: 20040109
  Transmission Date: 20041129
  Serious: Yes (Hospitalization)
  Sender: FDA-Public Use
  Company Number: 2004001543

PATIENT
  Age: 56 Year
  Sex: Male

DRUGS (3)
  1. ATARAX [Suspect]
     Indication: ILL-DEFINED DISORDER
     Dosage: 25 MG ONCE, ORAL
     Route: 048
     Dates: start: 20020823, end: 20020823
  2. CLORAZEPATE DIPOTASSIUM [Suspect]
     Indication: ILL-DEFINED DISORDER
     Dosage: 40 MG ONCE, ORAL
     Route: 048
     Dates: start: 20020823, end: 20020823
  3. NALBUPHINE (NALBUPHINE) [Suspect]
     Indication: ILL-DEFINED DISORDER
     Dosage: 10 MG ONCE, INTRAVENOUS
     Route: 042
     Dates: start: 20020823, end: 20020823

REACTIONS (2)
  - BRADYPNOEA [None]
  - DEPRESSED LEVEL OF CONSCIOUSNESS [None]
